FAERS Safety Report 5282960-2 (Version None)
Quarter: 2007Q1

REPORT INFORMATION
  Report Type: 
  Country: None (occurrence: None)
  Receive Date: 20070328
  Receipt Date: 20070328
  Transmission Date: 20070707
  Serious: Yes (Other)
  Sender: FDA-Public Use
  Company Number: None

PATIENT
  Age: 55 Year
  Sex: Male
  Weight: 84.8 kg

DRUGS (7)
  1. ZOCOR [Suspect]
  2. BUPROPION HCL [Concomitant]
  3. GLYBURIDE [Concomitant]
  4. VARDENAFIL HCL [Concomitant]
  5. LISINOPRIL [Concomitant]
  6. ASPIRIN [Concomitant]
  7. OMEPRAZOLE [Concomitant]

REACTIONS (1)
  - FATIGUE [None]
